FAERS Safety Report 6217346-7 (Version None)
Quarter: 2009Q2

REPORT INFORMATION
  Report Type: 
  Country: None (occurrence: None)
  Receive Date: 20090608
  Receipt Date: 20081017
  Transmission Date: 20091009
  Serious: No
  Sender: FDA-Public Use
  Company Number: A0729459A

PATIENT
  Age: 45 Year
  Sex: Female

DRUGS (2)
  1. WELLBUTRIN XL [Suspect]
     Indication: DEPRESSION
     Dosage: 150MG PER DAY
     Route: 048
     Dates: start: 20080508
  2. LORAZEPAM [Concomitant]

REACTIONS (9)
  - ABDOMINAL DISTENSION [None]
  - ANOREXIA [None]
  - ANXIETY [None]
  - DRUG INEFFECTIVE [None]
  - FLATULENCE [None]
  - MEDICATION RESIDUE [None]
  - NERVOUSNESS [None]
  - PRODUCT QUALITY ISSUE [None]
  - WEIGHT DECREASED [None]
